FAERS Safety Report 7493469-X (Version None)
Quarter: 2011Q2

REPORT INFORMATION
  Report Type: 
  Country: None (occurrence: None)
  Receive Date: 20110520
  Receipt Date: 20110509
  Transmission Date: 20111010
  Serious: Yes (Death, Other)
  Sender: FDA-Public Use
  Company Number: US-BAYER-200924106NA

PATIENT
  Age: 68 Year
  Sex: Female
  Weight: 84.807 kg

DRUGS (18)
  1. COREG [Concomitant]
     Dosage: 25 MG, UNK
     Route: 048
  2. HEPARIN [Concomitant]
     Dosage: 120,000UNITS
     Route: 042
     Dates: start: 20070530
  3. DOPAMINE HCL [Concomitant]
     Dosage: UNK
     Route: 042
     Dates: start: 20070530
  4. ACETYLSALICYLIC ACID SRT [Concomitant]
     Dosage: 81 MG, UNK
     Route: 048
  5. CARDENE [Concomitant]
     Dosage: UNK
     Route: 042
     Dates: start: 20070530
  6. RED BLOOD CELLS [Concomitant]
     Dosage: 2,300 ML
  7. PLATELETS [Concomitant]
     Dosage: 600 ML
  8. NIASPAN [Concomitant]
     Dosage: 500MG DAILY
     Dates: start: 20050101
  9. TRASYLOL [Suspect]
     Indication: CORONARY ARTERY BYPASS
     Dosage: 200 ML BOLUS, INFUSION RATE AT 50ML PER HOUR
     Route: 042
     Dates: start: 20070530, end: 20070530
  10. TENORMIN [Concomitant]
     Route: 048
  11. ATACAND [Concomitant]
     Dosage: 32/12.5MG
     Route: 048
  12. CRESTOR [Concomitant]
     Dosage: 5 MG, UNK
     Route: 048
  13. MANNITOL [Concomitant]
     Dosage: 50 G, UNK
     Route: 042
     Dates: start: 20070530
  14. VERSED [Concomitant]
     Dosage: 25 MG, UNK
     Route: 042
     Dates: start: 20070530
  15. FRESH FROZEN PLASMA [Concomitant]
     Dosage: 2,000 ML
  16. MILRINONE [Concomitant]
     Dosage: UNK
     Route: 042
     Dates: start: 20070530
  17. EPINEPHRINE [Concomitant]
     Dosage: UNK
     Route: 042
     Dates: start: 20070530
  18. DIGOXIN [Concomitant]
     Dosage: 0.25MG DAILY

REACTIONS (13)
  - UNEVALUABLE EVENT [None]
  - RENAL FAILURE [None]
  - PAIN [None]
  - INJURY [None]
  - MULTI-ORGAN FAILURE [None]
  - ANHEDONIA [None]
  - STRESS [None]
  - RENAL INJURY [None]
  - RENAL IMPAIRMENT [None]
  - ANXIETY [None]
  - DEATH [None]
  - EMOTIONAL DISTRESS [None]
  - FEAR [None]
